FAERS Safety Report 25488708 (Version 1)
Quarter: 2025Q2

REPORT INFORMATION
  Report Type: Spontaneous
  Country: US (occurrence: US)
  Receive Date: 20250627
  Receipt Date: 20250627
  Transmission Date: 20250716
  Serious: No
  Sender: BAYER HEALTHCARE LLC
  Company Number: US-BAYER-2025A081008

PATIENT
  Age: 21 Year
  Sex: Male

DRUGS (2)
  1. MIRALAX [Suspect]
     Active Substance: POLYETHYLENE GLYCOL 3350
     Indication: Gastrointestinal disorder
     Route: 048
  2. LACTULOSE [Suspect]
     Active Substance: LACTULOSE
     Indication: Gastrointestinal disorder
     Route: 048

REACTIONS (1)
  - Diarrhoea [None]
